FAERS Safety Report 22622432 (Version 1)
Quarter: 2023Q2

REPORT INFORMATION
  Report Type: Report from Study
  Country: US (occurrence: None)
  Receive Date: 20230621
  Receipt Date: 20230621
  Transmission Date: 20230721
  Serious: Yes (Other)
  Sender: FDA-Public Use
  Company Number: 2023A137847

PATIENT
  Sex: Female
  Weight: 49.7 kg

DRUGS (1)
  1. CALQUENCE [Suspect]
     Active Substance: ACALABRUTINIB
     Indication: Chronic lymphocytic leukaemia
     Route: 048
     Dates: start: 20230307

REACTIONS (3)
  - Liver injury [Unknown]
  - Renal injury [Unknown]
  - Hyperuricaemia [Unknown]
